FAERS Safety Report 7741063-5 (Version None)
Quarter: 2011Q3

REPORT INFORMATION
  Report Type: 
  Country: None (occurrence: None)
  Receive Date: 20110909
  Receipt Date: 20110906
  Transmission Date: 20111222
  Serious: Yes (Death, Other)
  Sender: FDA-Public Use
  Company Number: US-AMGEN-USASP2011042948

PATIENT
  Age: 78 Year
  Sex: Male

DRUGS (1)
  1. NPLATE [Suspect]
     Indication: THROMBOCYTOPENIA
     Dosage: 810 MUG, UNK
     Dates: start: 20101111, end: 20110510

REACTIONS (4)
  - DRUG INEFFECTIVE [None]
  - THROMBOCYTOPENIA [None]
  - DEATH [None]
  - MYELODYSPLASTIC SYNDROME [None]
